FAERS Safety Report 21882351 (Version 1)
Quarter: 2023Q1

REPORT INFORMATION
  Report Type: Spontaneous
  Country: US (occurrence: US)
  Receive Date: 20230119
  Receipt Date: 20230119
  Transmission Date: 20230417
  Serious: Yes (Other)
  Sender: FDA-Public Use
  Company Number: US-MLMSERVICE-20221229-4009564-1

PATIENT
  Age: 88 Year
  Sex: Female

DRUGS (1)
  1. VANCOMYCIN [Suspect]
     Active Substance: VANCOMYCIN
     Indication: Osteomyelitis
     Dosage: UNKNOWN
     Route: 065

REACTIONS (2)
  - Henoch-Schonlein purpura [Unknown]
  - Cutaneous vasculitis [Unknown]
